FAERS Safety Report 7129972 (Version 4)
Quarter: 2013Q3

REPORT INFORMATION
  Report Type: Spontaneous
  Country: US (occurrence: US)
  Receive Date: 20090924
  Receipt Date: 20130906
  Transmission Date: 20140515
  Serious: Yes (Other)
  Sender: FDA-Public Use
  Company Number: US-ELI_LILLY_AND_COMPANY-US200807002477

PATIENT
  Age: 47 Year
  Sex: Male

DRUGS (5)
  1. CIALIS [Suspect]
     Indication: ERECTILE DYSFUNCTION
     Dosage: 20 MG, UNK
     Route: 065
     Dates: start: 200807
  2. CIALIS [Suspect]
     Dosage: 20 MG, MONTHLY (1/M)
     Route: 065
  3. CIALIS [Suspect]
     Dosage: UNK, OTHER
     Route: 065
  4. CIALIS [Suspect]
     Dosage: 1 DF, UNKNOWN
     Route: 048
  5. VIAGRA [Concomitant]
     Dosage: 1 DF, PRN
     Route: 065

REACTIONS (9)
  - Peyronie^s disease [Unknown]
  - Penis disorder [Unknown]
  - Blood disorder [Unknown]
  - Priapism [Unknown]
  - Painful erection [Not Recovered/Not Resolved]
  - Dyspepsia [Unknown]
  - Priapism [Recovered/Resolved]
  - Therapeutic response decreased [Unknown]
  - Intentional drug misuse [Unknown]
